FAERS Safety Report 4335101-X (Version None)
Quarter: 2004Q2

REPORT INFORMATION
  Report Type: 
  Country: None (occurrence: None)
  Receive Date: 20040408
  Receipt Date: 20040127
  Transmission Date: 20050107
  Serious: Yes (Other)
  Sender: FDA-Public Use
  Company Number: PHEH2004US01263

PATIENT
  Age: 62 Year
  Sex: Male
  Weight: 118 kg

DRUGS (8)
  1. DIOVAN HCT [Suspect]
     Dosage: ONE TABLET DAILY
     Route: 048
     Dates: start: 20040112, end: 20040118
  2. DIOVAN HCT [Suspect]
     Dosage: ONE TABLET DAILY
     Dates: start: 20040120, end: 20040127
  3. ZOCOR [Concomitant]
     Indication: BLOOD CHOLESTEROL INCREASED
     Dosage: 20 MG, QD
     Route: 048
  4. HYZAAR [Concomitant]
     Indication: HYPERTENSION
     Dosage: 100/25 MG DAILY
  5. SULAR [Concomitant]
     Indication: HYPERTENSION
     Dosage: 20 MG, QD
     Route: 048
  6. K-DUR 10 [Concomitant]
  7. ATENOLOL [Concomitant]
     Dosage: 25 MG, QD
     Route: 048
  8. UROCIT-K [Concomitant]
     Dosage: 10 MEQ, BID
     Route: 048

REACTIONS (2)
  - BLOOD URINE [None]
  - HAEMATURIA [None]
